FAERS Safety Report 6883940-3 (Version None)
Quarter: 2010Q3

REPORT INFORMATION
  Report Type: 
  Country: None (occurrence: None)
  Receive Date: 20100729
  Receipt Date: 20100720
  Transmission Date: 20110219
  Serious: Yes (Death, Hospitalization, Other)
  Sender: FDA-Public Use
  Company Number: BR-MEDIMMUNE-MEDI-0011288

PATIENT
  Sex: Male
  Weight: 2.99 kg

DRUGS (1)
  1. SYNAGIS [Suspect]
     Route: 030
     Dates: start: 20100510, end: 20100510

REACTIONS (8)
  - ANAEMIA [None]
  - MALNUTRITION [None]
  - NOSOCOMIAL INFECTION [None]
  - PANCREATIC DISORDER [None]
  - PANCREATIC FISTULA [None]
  - PERICARDIAL EFFUSION [None]
  - PERITONITIS BACTERIAL [None]
  - PURULENCE [None]
